FAERS Safety Report 8777948 (Version 1)
Quarter: 2012Q4

REPORT INFORMATION
  Report Type: 
  Country: TR (occurrence: TR)
  Receive Date: 20120912
  Receipt Date: 20120912
  Transmission Date: 20130627
  Serious: Yes (Other)
  Sender: FDA-Public Use
  Company Number: PHHY2012TR076821

PATIENT
  Age: 57 Year
  Sex: Female
  Weight: 95 kg

DRUGS (4)
  1. PROPOFOL [Suspect]
     Indication: GENERAL ANAESTHESIA
     Dosage: 3 mg/kg, UNK
  2. FENTANYL [Suspect]
     Indication: GENERAL ANAESTHESIA
     Dosage: 1 ug/kg, UNK
  3. ROCURONIUM BROMIDE [Suspect]
     Indication: HYPOTONIA
     Dosage: 0.6 mg/kg, UNK
  4. SEVOFLURANE [Suspect]

REACTIONS (3)
  - Parotid gland enlargement [Recovered/Resolved]
  - Auricular swelling [Recovered/Resolved]
  - Crepitations [Recovered/Resolved]
